FAERS Safety Report 22123190 (Version 1)
Quarter: 2023Q1

REPORT INFORMATION
  Report Type: Spontaneous
  Country: US (occurrence: US)
  Receive Date: 20230322
  Receipt Date: 20230322
  Transmission Date: 20230418
  Serious: No
  Sender: FDA-Public Use
  Company Number: US-ASCENDIS PHARMA-2023US001795

PATIENT

DRUGS (4)
  1. SKYTROFA [Suspect]
     Active Substance: LONAPEGSOMATROPIN-TCGD
     Indication: Hypopituitarism
     Dosage: 13.3 MG, EVERY DAY
     Route: 058
     Dates: start: 20230214
  2. AZITHROMYCIN [Concomitant]
     Active Substance: AZITHROMYCIN
     Indication: Product used for unknown indication
     Dosage: 250 MILLIGRAM
  3. NORDITROPIN [Concomitant]
     Active Substance: SOMATROPIN
     Indication: Product used for unknown indication
     Dosage: 10 MILLIGRAM/1.5ML
  4. NORDITROPIN [Concomitant]
     Active Substance: SOMATROPIN
     Dosage: 30 MG/3ML

REACTIONS (1)
  - Product dispensing error [Unknown]
